FAERS Safety Report 18474183 (Version 1)
Quarter: 2020Q4

REPORT INFORMATION
  Report Type: Spontaneous
  Country: US (occurrence: US)
  Receive Date: 20201106
  Receipt Date: 20201106
  Transmission Date: 20210114
  Serious: No
  Sender: FDA-Public Use
  Company Number: US-009507513-2011USA000645

PATIENT
  Sex: Female
  Weight: 70.75 kg

DRUGS (1)
  1. NEXPLANON [Suspect]
     Active Substance: ETONOGESTREL
     Dosage: 1 DOSAGE FORM (1 ROD EVERY THREE YEARS), IN THE RIGHT ARM
     Route: 059
     Dates: start: 201911

REACTIONS (3)
  - Complication associated with device [Recovered/Resolved]
  - No adverse event [Unknown]
  - Device issue [Not Recovered/Not Resolved]
